FAERS Safety Report 26174769 (Version 1)
Quarter: 2025Q4

REPORT INFORMATION
  Report Type: Spontaneous
  Country: CN (occurrence: CN)
  Receive Date: 20251218
  Receipt Date: 20251218
  Transmission Date: 20260117
  Serious: Yes (Other)
  Sender: MERCK SHARP & DOHME LLC
  Company Number: CN-009507513-2362117

PATIENT
  Age: 76 Year
  Sex: Male

DRUGS (2)
  1. KEYTRUDA [Suspect]
     Active Substance: PEMBROLIZUMAB
     Indication: Lung squamous cell carcinoma recurrent
     Route: 041
     Dates: start: 20250929, end: 20251023
  2. PACLITAXEL [Suspect]
     Active Substance: PACLITAXEL
     Indication: Lung squamous cell carcinoma recurrent
     Route: 065
     Dates: start: 20251023

REACTIONS (5)
  - Interstitial lung disease [Recovering/Resolving]
  - Acute respiratory distress syndrome [Unknown]
  - Immune-mediated lung disease [Recovering/Resolving]
  - Respiratory failure [Unknown]
  - Product use issue [Unknown]

NARRATIVE: CASE EVENT DATE: 20251023
